FAERS Safety Report 20628319 (Version 8)
Quarter: 2023Q1

REPORT INFORMATION
  Report Type: Spontaneous
  Country: IN (occurrence: IN)
  Receive Date: 20220323
  Receipt Date: 20230227
  Transmission Date: 20230418
  Serious: Yes (Other)
  Sender: FDA-Public Use
  Company Number: IN-PFIZER INC-2021245714

PATIENT
  Age: 66 Year
  Sex: Female
  Weight: 80 kg

DRUGS (11)
  1. PALBOCICLIB [Suspect]
     Active Substance: PALBOCICLIB
     Indication: Breast cancer metastatic
     Dosage: UNK
     Dates: start: 201704
  2. PALBOCICLIB [Suspect]
     Active Substance: PALBOCICLIB
     Dosage: 125 MG, 1X/DAY
     Route: 048
     Dates: start: 20180328
  3. PALBOCICLIB [Suspect]
     Active Substance: PALBOCICLIB
     Dosage: 125 MG, 1X/DAY
     Route: 048
     Dates: start: 20180330
  4. PALBOCICLIB [Suspect]
     Active Substance: PALBOCICLIB
     Dosage: UNK
  5. PALBOCICLIB [Suspect]
     Active Substance: PALBOCICLIB
     Indication: Breast cancer metastatic
     Dosage: 125 MG
     Route: 048
  6. DENOSUMAB [Concomitant]
     Active Substance: DENOSUMAB
     Dosage: 120 MG
  7. FASLODEX [Concomitant]
     Active Substance: FULVESTRANT
     Indication: Breast cancer metastatic
     Dosage: UNK
     Dates: start: 201704
  8. FASLODEX [Concomitant]
     Active Substance: FULVESTRANT
     Dosage: 500 MG (250MG X 2) ONCE IN 4 WEEKS
     Route: 030
     Dates: start: 201803
  9. FASLODEX [Concomitant]
     Active Substance: FULVESTRANT
     Dosage: 500 MG, MONTHLY
     Route: 030
  10. ZOLEDRONIC ACID [Concomitant]
     Active Substance: ZOLEDRONIC ACID
     Dosage: ONCE IN 6 WEEKS
  11. FULVESTRANT [Concomitant]
     Active Substance: FULVESTRANT
     Dosage: 500MG(250MG X 2) ONCE IN 4 WEEKS TO CONTINUE. X 3 MONTHS
     Route: 030
     Dates: start: 201704

REACTIONS (29)
  - Endocarditis bacterial [Unknown]
  - Respiratory failure [Unknown]
  - Pericardial effusion [Recovered/Resolved]
  - Interstitial lung disease [Unknown]
  - Hypothyroidism [Unknown]
  - Back pain [Unknown]
  - White blood cell count decreased [Unknown]
  - Red blood cell count decreased [Unknown]
  - Haemoglobin decreased [Unknown]
  - Haematocrit decreased [Unknown]
  - Mean cell volume increased [Unknown]
  - Mean cell haemoglobin increased [Unknown]
  - Red cell distribution width increased [Unknown]
  - Lymphocyte percentage decreased [Unknown]
  - Basophil percentage increased [Unknown]
  - Breast pain [Unknown]
  - Breast swelling [Unknown]
  - Throat irritation [Unknown]
  - Cough [Unknown]
  - Dyspnoea [Recovered/Resolved]
  - Liver disorder [Unknown]
  - Neoplasm progression [Unknown]
  - Cardiomegaly [Unknown]
  - Lung opacity [Unknown]
  - Pleural effusion [Unknown]
  - Pallor [Unknown]
  - Crepitations [Unknown]
  - Adrenal mass [Unknown]
  - Alveolitis [Unknown]

NARRATIVE: CASE EVENT DATE: 20211218
